FAERS Safety Report 6448737-7 (Version None)
Quarter: 2009Q4

REPORT INFORMATION
  Report Type: 
  Country: None (occurrence: None)
  Receive Date: 20091120
  Receipt Date: 20091012
  Transmission Date: 20100525
  Serious: No
  Sender: FDA-Public Use
  Company Number: US-KINGPHARMUSA00001-K200901264

PATIENT
  Sex: Female

DRUGS (2)
  1. FLECTOR [Suspect]
     Indication: MUSCULOSKELETAL PAIN
     Dosage: 3 PATCH, QD
     Route: 061
     Dates: start: 20090101
  2. LORTAB [Concomitant]
     Indication: MUSCULOSKELETAL PAIN
     Dosage: 5/500 MG, UNK

REACTIONS (2)
  - CONSTIPATION [None]
  - DRUG EFFECT DECREASED [None]
